FAERS Safety Report 11148398 (Version 1)
Quarter: 2015Q2

REPORT INFORMATION
  Report Type: Spontaneous
  Country: CH (occurrence: FR)
  Receive Date: 20150529
  Receipt Date: 20150529
  Transmission Date: 20150821
  Serious: Yes (Other)
  Sender: FDA-Public Use
  Company Number: CH-LPDUSPRD-20150361

PATIENT
  Age: 81 Year
  Sex: Male

DRUGS (6)
  1. LASILIX [Concomitant]
     Active Substance: FUROSEMIDE
     Dosage: 1 DOSAGE FORM, 1 IN 1 D
     Route: 048
     Dates: start: 201504, end: 20150418
  2. FERINJECT [Suspect]
     Active Substance: FERRIC CARBOXYMALTOSE
     Dosage: 1000 MG
     Route: 041
     Dates: start: 20150414
  3. KARDEGIC [Concomitant]
     Active Substance: ASPIRIN LYSINE
     Dosage: DOSE NOT PROVIDED
  4. ZOPICLONE ARROW [Concomitant]
     Active Substance: ZOPICLONE
     Dosage: 1 DOSAGE FORM, 1 IN 1 D
     Route: 048
     Dates: start: 20150413
  5. CALCIPARINE SOUS CUTANAE [Concomitant]
     Dosage: 12500 IU/0.5ML, 1 IN 1 D
     Route: 058
     Dates: start: 201504, end: 20150416
  6. INEXIUM [Concomitant]
     Active Substance: ESOMEPRAZOLE
     Dosage: 1 DOSAGE FORM, 1 IN 1 D
     Route: 048
     Dates: start: 201504, end: 20150421

REACTIONS (4)
  - Sinus tachycardia [Unknown]
  - Chills [Unknown]
  - Oxygen saturation decreased [Unknown]
  - Chest discomfort [Unknown]

NARRATIVE: CASE EVENT DATE: 20150407
